FAERS Safety Report 19446824 (Version 1)
Quarter: 2021Q2

REPORT INFORMATION
  Report Type: Spontaneous
  Country: DE (occurrence: DE)
  Receive Date: 20210622
  Receipt Date: 20210622
  Transmission Date: 20210717
  Serious: Yes (Other)
  Sender: FDA-Public Use
  Company Number: DE-ASTRAZENECA-2021A532914

PATIENT
  Age: 67 Year
  Sex: Male

DRUGS (1)
  1. DURVALUMAB. [Suspect]
     Active Substance: DURVALUMAB
     Route: 042
     Dates: start: 201811, end: 201911

REACTIONS (4)
  - Emphysema [Recovering/Resolving]
  - Pulmonary cavitation [Unknown]
  - Pneumonia bacterial [Unknown]
  - Pneumococcal sepsis [Unknown]

NARRATIVE: CASE EVENT DATE: 201904
